FAERS Safety Report 13150221 (Version 1)
Quarter: 2017Q1

REPORT INFORMATION
  Report Type: Report from Study
  Country: US (occurrence: US)
  Receive Date: 20170124
  Receipt Date: 20170124
  Transmission Date: 20170428
  Serious: No
  Sender: FDA-Public Use
  Company Number: US-AMGEN-USASL2016162695

PATIENT
  Age: 68 Year
  Sex: Female

DRUGS (1)
  1. REPATHA [Suspect]
     Active Substance: EVOLOCUMAB
     Indication: BLOOD CHOLESTEROL ABNORMAL
     Dosage: 140 MG, Q2WK
     Route: 065
     Dates: start: 20161115

REACTIONS (7)
  - Alopecia [Recovering/Resolving]
  - Feeling cold [Recovered/Resolved]
  - Injection site erythema [Recovered/Resolved]
  - Influenza like illness [Recovered/Resolved]
  - Blood glucose increased [Unknown]
  - Injection site pain [Recovered/Resolved]
  - Weight decreased [Unknown]

NARRATIVE: CASE EVENT DATE: 20161115
